FAERS Safety Report 18978607 (Version 1)
Quarter: 2021Q1

REPORT INFORMATION
  Report Type: Spontaneous
  Country: TR (occurrence: TR)
  Receive Date: 20210308
  Receipt Date: 20210308
  Transmission Date: 20210420
  Serious: Yes (Other)
  Sender: FDA-Public Use
  Company Number: TR-SHIRE-TR202033205

PATIENT
  Age: 22 Year
  Sex: Female

DRUGS (5)
  1. AZATHIOPRINE. [Concomitant]
     Active Substance: AZATHIOPRINE
     Dosage: 150 MILLIGRAM, QD
     Route: 065
  2. METHYLPREDNISOLONE. [Concomitant]
     Active Substance: METHYLPREDNISOLONE
     Dosage: 60 MILLIGRAM, QD
     Route: 065
  3. 476 (MESALAZINE/MESALAMINE) [Suspect]
     Active Substance: MESALAMINE
     Indication: COLITIS ULCERATIVE
  4. METRONIDAZOLE [METRONIDAZOLE HYDROCHLORIDE] [Concomitant]
     Dosage: 1500 MILLIGRAM, QD
     Route: 042
  5. 476 (MESALAZINE/MESALAMINE) [Suspect]
     Active Substance: MESALAMINE
     Indication: ARTHRITIS ENTEROPATHIC
     Dosage: 2000 MILLIGRAM, QD
     Route: 065

REACTIONS (5)
  - Blood creatinine increased [Recovered/Resolved]
  - Product use in unapproved indication [Unknown]
  - Renal impairment [Unknown]
  - White blood cell count increased [Unknown]
  - Pyrexia [Recovered/Resolved]
